FAERS Safety Report 10550441 (Version 4)
Quarter: 2015Q1

REPORT INFORMATION
  Report Type: Spontaneous
  Country: GB (occurrence: GB)
  Receive Date: 20141029
  Receipt Date: 20150106
  Transmission Date: 20150720
  Serious: Yes (Other)
  Sender: FDA-Public Use
  Company Number: GB-009507513-1410GBR012481

PATIENT
  Age: 22 Year
  Sex: Female

DRUGS (1)
  1. ETONOGESTREL IMPLANT- UNKNOWN [Suspect]
     Active Substance: ETONOGESTREL
     Dosage: UNK
     Route: 059
     Dates: start: 20120607

REACTIONS (8)
  - Abscess drainage [Unknown]
  - Device difficult to use [Not Recovered/Not Resolved]
  - Medical device complication [Not Recovered/Not Resolved]
  - Malaise [Not Recovered/Not Resolved]
  - Acne [Unknown]
  - Groin abscess [Unknown]
  - Weight increased [Unknown]
  - Abscess drainage [Unknown]

NARRATIVE: CASE EVENT DATE: 2012
